FAERS Safety Report 10178209 (Version 1)
Quarter: 2014Q2

REPORT INFORMATION
  Report Type: Spontaneous
  Country: US (occurrence: US)
  Receive Date: 20140519
  Receipt Date: 20140519
  Transmission Date: 20141212
  Serious: No
  Sender: FDA-Public Use
  Company Number: US-009507513-1405USA005536

PATIENT
  Age: 76 Year
  Sex: Female

DRUGS (2)
  1. DULERA [Suspect]
     Indication: EMPHYSEMA
     Dosage: UNK
     Route: 055
     Dates: start: 20140507
  2. INSULIN [Concomitant]

REACTIONS (2)
  - Blood glucose increased [Unknown]
  - Off label use [Unknown]
